FAERS Safety Report 5954808-1 (Version None)
Quarter: 2008Q4

REPORT INFORMATION
  Report Type: 
  Country: None (occurrence: None)
  Receive Date: 20081117
  Receipt Date: 20081107
  Transmission Date: 20090506
  Serious: Yes (Hospitalization)
  Sender: FDA-Public Use
  Company Number: US-JNJFOC-20081102074

PATIENT
  Sex: Male
  Weight: 70.31 kg

DRUGS (5)
  1. REMICADE [Suspect]
     Indication: CROHN'S DISEASE
     Route: 042
  2. CRESTOR [Concomitant]
     Indication: BLOOD CHOLESTEROL
  3. METOPROLOL TARTRATE [Concomitant]
     Indication: CARDIAC DISORDER
  4. ISOSORBIDE [Concomitant]
     Indication: CARDIAC DISORDER
  5. LOMOTIL [Concomitant]
     Indication: DIARRHOEA

REACTIONS (5)
  - ARTHRALGIA [None]
  - DRUG HYPERSENSITIVITY [None]
  - GAIT DISTURBANCE [None]
  - HEADACHE [None]
  - HOSPITALISATION [None]
